FAERS Safety Report 17524659 (Version 1)
Quarter: 2020Q1

REPORT INFORMATION
  Report Type: Spontaneous
  Country: US (occurrence: US)
  Receive Date: 20200302
  Receipt Date: 20200302
  Transmission Date: 20200409
  Serious: No
  Sender: FDA-Public Use
  Company Number: None

PATIENT
  Age: 62 Year
  Sex: Female
  Weight: 52.62 kg

DRUGS (1)
  1. EMGALITY [Suspect]
     Active Substance: GALCANEZUMAB-GNLM
     Indication: MIGRAINE
     Dosage: ?          QUANTITY:1 PEN INJECTOR;OTHER ROUTE:INJECTION?
     Dates: start: 20191209, end: 20200205

REACTIONS (2)
  - Pharyngeal swelling [None]
  - Throat tightness [None]

NARRATIVE: CASE EVENT DATE: 20200205
